FAERS Safety Report 7164614-0 (Version None)
Quarter: 2010Q4

REPORT INFORMATION
  Report Type: 
  Country: None (occurrence: None)
  Receive Date: 20101215
  Receipt Date: 20101203
  Transmission Date: 20110411
  Serious: Yes (Hospitalization)
  Sender: FDA-Public Use
  Company Number: JP-PFIZER INC-2010170501

PATIENT
  Age: 62 Year
  Sex: Female

DRUGS (4)
  1. LIPITOR [Suspect]
     Dosage: 10 MG, UNK
     Route: 048
  2. MICARDIS [Concomitant]
  3. CONIEL [Concomitant]
     Route: 048
  4. ARTIST [Concomitant]
     Route: 048

REACTIONS (4)
  - EOSINOPHIL COUNT INCREASED [None]
  - EOSINOPHILIC FASCIITIS [None]
  - OEDEMA PERIPHERAL [None]
  - PHLEBITIS [None]
